FAERS Safety Report 10068434 (Version 1)
Quarter: 2014Q2

REPORT INFORMATION
  Report Type: Spontaneous
  Country: KR (occurrence: KR)
  Receive Date: 20140409
  Receipt Date: 20140409
  Transmission Date: 20141212
  Serious: Yes (Hospitalization)
  Sender: FDA-Public Use
  Company Number: KR-SA-2014SA043825

PATIENT
  Age: 76 Year
  Sex: Female

DRUGS (14)
  1. OXALIPLATIN [Suspect]
     Indication: COLORECTAL CANCER
     Dosage: INFUSION
     Route: 065
  2. OXALIPLATIN [Suspect]
     Indication: COLORECTAL CANCER
     Dosage: INFUSION
     Route: 065
  3. OXALIPLATIN [Suspect]
     Indication: COLORECTAL CANCER
     Dosage: INFUSION
     Route: 065
  4. OXALIPLATIN [Suspect]
     Indication: COLORECTAL CANCER
     Dosage: INFUSION
     Route: 065
  5. FLUOROURACIL [Suspect]
     Indication: COLORECTAL CANCER
     Route: 065
  6. FLUOROURACIL [Suspect]
     Indication: COLORECTAL CANCER
     Dosage: INFUSION
     Route: 065
  7. FLUOROURACIL [Suspect]
     Indication: COLORECTAL CANCER
     Dosage: INFUSION
     Route: 065
  8. FLUOROURACIL [Suspect]
     Indication: COLORECTAL CANCER
     Route: 065
  9. FLUOROURACIL [Suspect]
     Indication: COLORECTAL CANCER
     Route: 065
  10. LEUCOVORIN [Suspect]
     Indication: COLORECTAL CANCER
     Route: 065
  11. LEUCOVORIN [Suspect]
     Indication: COLORECTAL CANCER
     Dosage: INFUSION
     Route: 065
  12. LEUCOVORIN [Suspect]
     Indication: COLORECTAL CANCER
     Dosage: INFUSION
     Route: 065
  13. LEUCOVORIN [Suspect]
     Indication: COLORECTAL CANCER
     Dosage: INFUSION
     Route: 065
  14. LEUCOVORIN [Suspect]
     Indication: COLORECTAL CANCER
     Dosage: INFUSION
     Route: 065

REACTIONS (5)
  - Pulmonary sarcoidosis [Recovering/Resolving]
  - Dyspnoea [Recovering/Resolving]
  - Hypoxia [Recovering/Resolving]
  - Angiotensin converting enzyme increased [Recovering/Resolving]
  - Pulmonary embolism [Unknown]
